FAERS Safety Report 24686238 (Version 1)
Quarter: 2024Q4

REPORT INFORMATION
  Report Type: Spontaneous
  Country: DE (occurrence: DE)
  Receive Date: 20241202
  Receipt Date: 20241202
  Transmission Date: 20250114
  Serious: Yes (Hospitalization)
  Sender: FRESENIUS KABI
  Company Number: DE-ROCHE-10000129920

PATIENT
  Age: 62 Year
  Sex: Male
  Weight: 88 kg

DRUGS (5)
  1. LEUCOVORIN [Suspect]
     Active Substance: LEUCOVORIN\LEUCOVORIN CALCIUM
     Indication: Gastrooesophageal cancer
     Dosage: ON 25/OCT/2024, RECEIVED MOST RECENT DOSE 416MG OF LEUCOVORIN PRIOR TO SAE.
     Route: 065
     Dates: start: 20240909
  2. OXALIPLATIN [Suspect]
     Active Substance: OXALIPLATIN
     Indication: Gastrooesophageal cancer
     Dosage: ON 25/OCT/2024, RECEIVED MOST RECENT DOSE 176.8MG  PRIOR TO SAE.
     Route: 065
     Dates: start: 20240909
  3. TECENTRIQ [Suspect]
     Active Substance: ATEZOLIZUMAB
     Indication: Gastrooesophageal cancer
     Dosage: ON 25/OCT/2024, RECEIVED 840MG OF ATEZOLIZUMAB PRIOR TO SAE.
     Route: 065
     Dates: start: 20240909
  4. DOCETAXEL [Suspect]
     Active Substance: DOCETAXEL
     Indication: Gastrooesophageal cancer
     Dosage: ON 25/OCT/2024, RECEIVED MOST RECENT DOSE 104MG OF DOCETAXEL PRIOR TO SAE.
     Route: 065
     Dates: start: 20240909
  5. FLUOROURACIL [Suspect]
     Active Substance: FLUOROURACIL
     Indication: Gastrooesophageal cancer
     Dosage: ON 25/OCT/2024, RECEIVED 5408MG OF 5-FLUROURACIL PRIOR TO SAE.
     Route: 065
     Dates: start: 20240909

REACTIONS (1)
  - Pyrexia [Not Recovered/Not Resolved]

NARRATIVE: CASE EVENT DATE: 20241110
